FAERS Safety Report 14799700 (Version 1)
Quarter: 2018Q2

REPORT INFORMATION
  Report Type: Other
  Country: SE (occurrence: SE)
  Receive Date: 20180424
  Receipt Date: 20180424
  Transmission Date: 20180711
  Serious: Yes (Other)
  Sender: FDA-Public Use
  Company Number: SE-VALIDUS PHARMACEUTICALS LLC-SE-2018VAL000676

PATIENT
  Age: 58 Year
  Sex: Female

DRUGS (1)
  1. CEFOTAXIME SODIUM [Suspect]
     Active Substance: CEFOTAXIME SODIUM
     Indication: RENAL ABSCESS
     Dosage: 3 G, QD
     Route: 065
     Dates: start: 20180129, end: 20180131

REACTIONS (1)
  - Drug-induced liver injury [Recovered/Resolved]

NARRATIVE: CASE EVENT DATE: 20180131
